FAERS Safety Report 5311514-4 (Version None)
Quarter: 2007Q2

REPORT INFORMATION
  Report Type: 
  Country: None (occurrence: None)
  Receive Date: 20070430
  Receipt Date: 20070420
  Transmission Date: 20071010
  Serious: Yes (Other)
  Sender: FDA-Public Use
  Company Number: 2007JP000285

PATIENT
  Age: 74 Year
  Sex: Female

DRUGS (9)
  1. CEFAZOLIN [Suspect]
     Indication: SKIN INFECTION
     Dosage: 1G TWICE PER DAY
     Route: 042
     Dates: start: 20070115, end: 20070118
  2. MEVALOTIN [Suspect]
     Dosage: 10MG FOUR TIMES PER DAY
     Route: 048
     Dates: end: 20070118
  3. OPALMON [Suspect]
     Indication: PERIPHERAL CIRCULATORY FAILURE
     Dosage: 10UG THREE TIMES PER DAY
     Route: 048
     Dates: end: 20070118
  4. TICLOPIDINE HCL [Suspect]
     Indication: PERIPHERAL CIRCULATORY FAILURE
     Dosage: 100MG TWICE PER DAY
     Route: 048
     Dates: start: 20040501
  5. PREDONINE [Suspect]
     Indication: SARCOIDOSIS
     Dosage: 5MG FOUR TIMES PER DAY
     Route: 048
  6. ALFAROL [Suspect]
     Indication: SARCOIDOSIS
     Dosage: 1UG FOUR TIMES PER DAY
     Route: 048
     Dates: end: 20070118
  7. CYANOCOBALAMIN [Concomitant]
     Indication: DRUG USE FOR UNKNOWN INDICATION
     Route: 048
     Dates: end: 20070118
  8. ASPIRIN [Concomitant]
     Indication: DRUG USE FOR UNKNOWN INDICATION
     Route: 048
  9. NEUTROGIN [Concomitant]
     Dosage: 100MG SEE DOSAGE TEXT
     Route: 058
     Dates: start: 20070118

REACTIONS (3)
  - DRUG HYPERSENSITIVITY [None]
  - LEUKOPENIA [None]
  - SWELLING [None]
